FAERS Safety Report 9103018 (Version 1)
Quarter: 2013Q1

REPORT INFORMATION
  Report Type: Spontaneous
  Country: US (occurrence: US)
  Receive Date: 20130219
  Receipt Date: 20130219
  Transmission Date: 20140127
  Serious: Yes (Hospitalization)
  Sender: FDA-Public Use
  Company Number: US-ELI_LILLY_AND_COMPANY-US201302003326

PATIENT
  Sex: Female

DRUGS (19)
  1. FORTEO [Suspect]
     Indication: OSTEOPOROSIS
     Dosage: 20 UG, QD
  2. FORTEO [Suspect]
     Dosage: 20 UG, QD
  3. PLAQUENIL [Concomitant]
     Dosage: 200 MG, BID
  4. HYDREA [Concomitant]
     Dosage: 500 MG, OTHER
  5. NORVASC [Concomitant]
     Dosage: 5 MG, QD
  6. PROZAC [Concomitant]
     Dosage: 40 MG, QD
  7. LYRICA [Concomitant]
     Dosage: 100 MG, BID
  8. ASPIRIN LOW [Concomitant]
     Dosage: UNK, QD
  9. SULINDAC [Concomitant]
     Dosage: 200 MG, BID
  10. PREDNISONE [Concomitant]
     Dosage: 5 MG, QD
  11. ROZEREM [Concomitant]
     Dosage: 8 MG, QD
  12. NEXIUM [Concomitant]
     Dosage: 40 MG, BID
  13. METFORMIN [Concomitant]
     Dosage: 500 MG, BID
  14. IRON [Concomitant]
     Dosage: UNK, QD
  15. VITAMIN D [Concomitant]
     Dosage: UNK, QD
  16. VITAMIN C [Concomitant]
  17. CALCIUM [Concomitant]
  18. ULTRAM [Concomitant]
     Dosage: UNK, PRN
  19. VICODIN [Concomitant]
     Dosage: UNK, PRN

REACTIONS (6)
  - Pneumonia [Recovered/Resolved]
  - Pneumonia [Recovered/Resolved]
  - Monoplegia [Recovered/Resolved]
  - Postoperative abscess [Recovered/Resolved]
  - Pneumonia [Recovered/Resolved]
  - Platelet count increased [Unknown]
